FAERS Safety Report 21045867 (Version 1)
Quarter: 2022Q3

REPORT INFORMATION
  Report Type: Spontaneous
  Country: US (occurrence: US)
  Receive Date: 20220706
  Receipt Date: 20220706
  Transmission Date: 20221027
  Serious: No
  Sender: FDA-Public Use
  Company Number: US-TEVA-2022-US-2045839

PATIENT
  Sex: Female

DRUGS (1)
  1. TEMAZEPAM [Suspect]
     Active Substance: TEMAZEPAM
     Indication: Product used for unknown indication
     Route: 065

REACTIONS (4)
  - Therapeutic product effect incomplete [Unknown]
  - Patient dissatisfaction with treatment [Unknown]
  - Poor quality sleep [Unknown]
  - Wrong technique in product usage process [Unknown]
